FAERS Safety Report 8173543-5 (Version None)
Quarter: 2012Q1

REPORT INFORMATION
  Report Type: 
  Country: None (occurrence: None)
  Receive Date: 20120229
  Receipt Date: 20120217
  Transmission Date: 20120608
  Serious: Yes (Hospitalization)
  Sender: FDA-Public Use
  Company Number: US-JNJFOC-20120210690

PATIENT
  Sex: Female
  Weight: 4.54 kg

DRUGS (2)
  1. CONCENTRATED TYLENOL INFANT DROPS [Suspect]
     Route: 048
  2. CONCENTRATED TYLENOL INFANT DROPS [Suspect]
     Indication: PROPHYLAXIS
     Route: 048
     Dates: start: 20120214, end: 20120201

REACTIONS (5)
  - CRYING [None]
  - DEHYDRATION [None]
  - DRUG INEFFECTIVE [None]
  - INJECTION SITE PAIN [None]
  - RESTLESSNESS [None]
